FAERS Safety Report 4295339-7 (Version None)
Quarter: 2004Q1

REPORT INFORMATION
  Report Type: 
  Country: None (occurrence: None)
  Receive Date: 20040216
  Receipt Date: 20030616
  Transmission Date: 20041129
  Serious: No
  Sender: FDA-Public Use
  Company Number: US-GLAXOSMITHKLINE-A0412825A

PATIENT
  Age: 31 Year
  Sex: Female

DRUGS (4)
  1. LAMICTAL [Suspect]
     Route: 048
  2. LEXAPRO [Suspect]
     Indication: DEPRESSION
     Route: 048
     Dates: start: 20020923
  3. SEROQUEL [Concomitant]
  4. BIRTH CONTROL [Concomitant]
     Dates: start: 20030401

REACTIONS (5)
  - DRY MOUTH [None]
  - INSOMNIA [None]
  - RASH [None]
  - SLEEP DISORDER [None]
  - VISION BLURRED [None]
